FAERS Safety Report 25802314 (Version 1)
Quarter: 2025Q3

REPORT INFORMATION
  Report Type: Spontaneous
  Country: US (occurrence: None)
  Receive Date: 20250913
  Receipt Date: 20250913
  Transmission Date: 20251021
  Serious: Yes (Life-Threatening)
  Sender: FDA-CTU
  Company Number: None

PATIENT
  Age: 29 Year
  Sex: Female
  Weight: 76.5 kg

DRUGS (6)
  1. BUPROPION [Suspect]
     Active Substance: BUPROPION
  2. DEXTROMETHORPHAN [Suspect]
     Active Substance: DEXTROMETHORPHAN
  3. ZYRTEC [Suspect]
     Active Substance: CETIRIZINE HYDROCHLORIDE
  4. SUBAFED [Concomitant]
  5. ATORVASTATIN [Concomitant]
     Active Substance: ATORVASTATIN
  6. PSEUDOEPHEDRINE [Concomitant]
     Active Substance: PSEUDOEPHEDRINE

REACTIONS (6)
  - Drug interaction [None]
  - Serotonin syndrome [None]
  - Flushing [None]
  - Fatigue [None]
  - Labelled drug-drug interaction issue [None]
  - Product prescribing issue [None]

NARRATIVE: CASE EVENT DATE: 20250912
